FAERS Safety Report 10459025 (Version 2)
Quarter: 2014Q3

REPORT INFORMATION
  Report Type: Spontaneous
  Country: US (occurrence: None)
  Receive Date: 20140915
  Receipt Date: 20140929
  Transmission Date: 20150326
  Serious: No
  Sender: FDA-Public Use
  Company Number: US-MDCO-14-00210

PATIENT
  Age: 51 Year
  Sex: Female
  Weight: 116 kg

DRUGS (15)
  1. PLAVIX [Suspect]
     Active Substance: CLOPIDOGREL BISULFATE
     Indication: PLATELET AGGREGATION INHIBITION
     Route: 048
     Dates: start: 20140813, end: 20140813
  2. LOPRESSOR [Concomitant]
     Active Substance: METOPROLOL TARTRATE
  3. BIVALIRUDIN [Suspect]
     Active Substance: BIVALIRUDIN
     Indication: ANGIOPLASTY
     Dosage: 17.6 ML, INTRAVENOUS BOLUS 12.AUG.2014 AT 13:06 12.AUG.2014 AT13:06
     Route: 040
     Dates: start: 20140812, end: 20140812
  4. LIPITOR [Concomitant]
     Active Substance: ATORVASTATIN CALCIUM
  5. LEXAPRO [Concomitant]
     Active Substance: ESCITALOPRAM OXALATE
  6. LANTUS [Concomitant]
     Active Substance: INSULIN GLARGINE
  7. ISOSORBIDE DINITRATE (ISOSORBIDE DINITRATE) [Concomitant]
  8. LOVAZA [Concomitant]
     Active Substance: OMEGA-3-ACID ETHYL ESTERS
  9. NEURONTIN [Concomitant]
     Active Substance: GABAPENTIN
  10. ANTIVERT (ANCOVERT) [Concomitant]
  11. ASPIRIN (ACETYLSALICYLIC ACID) [Concomitant]
     Active Substance: ASPIRIN
  12. MEDROL DOSEPACK (METHYLPREDNISOLONE) [Concomitant]
  13. ABILIFY [Concomitant]
     Active Substance: ARIPIPRAZOLE
  14. LYRICA [Concomitant]
     Active Substance: PREGABALIN
  15. EFFEXOR XR (VENLAFAXINE HYDROCHLORIDE) [Concomitant]

REACTIONS (3)
  - Stevens-Johnson syndrome [None]
  - Ulcer [None]
  - Vertigo [None]

NARRATIVE: CASE EVENT DATE: 20140825
